FAERS Safety Report 9227070 (Version 3)
Quarter: 2013Q3

REPORT INFORMATION
  Report Type: Spontaneous
  Country: US (occurrence: None)
  Receive Date: 20130410
  Receipt Date: 20130730
  Transmission Date: 20140515
  Serious: Yes (Other)
  Sender: FDA-Public Use
  Company Number: A1018202A

PATIENT
  Age: 52 Year
  Sex: Female

DRUGS (2)
  1. SODIUM FLUORIDE \ POTASSIUM NITRATE [Suspect]
     Indication: SENSITIVITY OF TEETH
     Route: 004
  2. SODIUM FLUORIDE + POTASAIUM NITRATE TOOTHPASTE (SODIUM FLUORIDE + POTASSI) [Suspect]
     Indication: DENTAL CARE
     Route: 004

REACTIONS (16)
  - Hypersensitivity [None]
  - Oral mucosal blistering [None]
  - Oropharyngeal blistering [None]
  - Dysphagia [None]
  - Hypoaesthesia [None]
  - Ageusia [None]
  - Hypophagia [None]
  - Tongue ulceration [None]
  - Pharyngeal hypoaesthesia [None]
  - Hypoaesthesia oral [None]
  - Throat tightness [None]
  - Pharyngeal oedema [None]
  - Tongue discolouration [None]
  - Tongue ulceration [None]
  - Oral mucosal exfoliation [None]
  - Stomatitis [None]
